FAERS Safety Report 7776474-5 (Version None)
Quarter: 2011Q3

REPORT INFORMATION
  Report Type: 
  Country: None (occurrence: None)
  Receive Date: 20110926
  Receipt Date: 20110913
  Transmission Date: 20111222
  Serious: Yes (Hospitalization, Other)
  Sender: FDA-Public Use
  Company Number: US-ELI_LILLY_AND_COMPANY-US201006001076

PATIENT
  Sex: Female
  Weight: 55 kg

DRUGS (27)
  1. ASPIRIN [Concomitant]
  2. VITAMIN D [Concomitant]
     Dosage: UNK, DAILY (1/D)
  3. WARFARIN [Concomitant]
  4. PANTOPRAZOLE SODIUM [Concomitant]
     Dosage: 40 MG, BID
     Route: 048
  5. FORTEO [Suspect]
     Dosage: 20 UG, QD
     Route: 058
  6. FORTEO [Suspect]
     Indication: OSTEOPOROSIS
     Dosage: 20 UG, QD
     Dates: start: 20100501
  7. FORTEO [Suspect]
     Dosage: 20 UG, QD
  8. CALTRATE 600 + D [Concomitant]
     Dosage: UNK, 2/D
  9. FUROSEMIDE [Concomitant]
  10. ACETAMINOPHEN [Concomitant]
     Dosage: UNK UNK, EVERY 4 OR 6 HOURS AS NEEDED
  11. CILOSTAZOL [Concomitant]
     Dosage: 100 MG, 2/D
     Route: 048
  12. ZILACTIN [Concomitant]
     Dosage: 0.5 MG, DAILY (1/D)
  13. SYNTHROID [Concomitant]
     Dosage: 0.112 MG, DAILY (1/D)
  14. AMLODIPINE BESYLATE [Concomitant]
  15. POTASSIUM [Concomitant]
  16. PANTOPRAZOLE [Concomitant]
     Dosage: 40 MG, 2/D
  17. HYDROCHLOROTHIAZIDE [Concomitant]
     Dosage: 12.5 MG, DAILY (1/D)
  18. LISINOPRIL [Concomitant]
  19. SPIRIVA [Concomitant]
  20. TOPROL-XL [Concomitant]
  21. CALCITRIOL [Concomitant]
     Dosage: 0.5 UG, UNK
     Route: 048
  22. CALCITRIOL [Concomitant]
     Dosage: 0.25 UG, QD
     Route: 048
  23. IBUPROFEN [Concomitant]
     Dosage: 800 MG, 3 TIMES A DAY AS NEEDED
     Route: 048
  24. FORTEO [Suspect]
     Dosage: 20 UG, DAILY (1/D)
     Route: 058
  25. PLAVIX [Concomitant]
  26. AMLODIPINE BESYLATE [Concomitant]
     Dosage: 10 MG, QD
     Route: 048
  27. CARVEDILOL [Concomitant]

REACTIONS (12)
  - CARDIAC FAILURE CONGESTIVE [None]
  - PULSE ABSENT [None]
  - STRESS [None]
  - FAMILY STRESS [None]
  - COUGH [None]
  - PRURITUS [None]
  - MYOCARDIAL INFARCTION [None]
  - CORONARY ARTERY DISEASE [None]
  - VENOUS OCCLUSION [None]
  - ATRIAL FIBRILLATION [None]
  - CARDIAC MURMUR [None]
  - HYPOCALCAEMIA [None]
